FAERS Safety Report 10079957 (Version 1)
Quarter: 2014Q2

REPORT INFORMATION
  Report Type: Spontaneous
  Country: US (occurrence: US)
  Receive Date: 20140415
  Receipt Date: 20140415
  Transmission Date: 20141212
  Serious: No
  Sender: FDA-Public Use
  Company Number: US-ASTRAZENECA-2014SE20833

PATIENT
  Sex: Female

DRUGS (6)
  1. PRILOSEC OTC [Suspect]
     Route: 048
     Dates: start: 20140321, end: 20140321
  2. GLIMEPIRIDE [Concomitant]
     Dosage: UNKNOWN
  3. LANTUS [Concomitant]
     Dosage: UNKNOWN
  4. NOVOLOG [Concomitant]
     Dosage: UNKNOWN
  5. LISINOPRIL [Concomitant]
  6. LABETALOL [Concomitant]
     Dosage: UNKNOWN

REACTIONS (4)
  - Flushing [Recovered/Resolved]
  - Pruritus generalised [Recovered/Resolved]
  - Paraesthesia oral [Recovered/Resolved]
  - Skin burning sensation [Recovered/Resolved]
